FAERS Safety Report 5495314-0 (Version None)
Quarter: 2007Q4

REPORT INFORMATION
  Report Type: 
  Country: None (occurrence: None)
  Receive Date: 20071024
  Receipt Date: 20071019
  Transmission Date: 20080405
  Serious: Yes (Life-Threatening)
  Sender: FDA-Public Use
  Company Number: AU-MERCK-0710AUS00154

PATIENT
  Age: 69 Year
  Sex: Male
  Weight: 75 kg

DRUGS (5)
  1. MEFOXIN [Suspect]
     Route: 051
     Dates: start: 20070430, end: 20070430
  2. FENTANYL [Suspect]
     Route: 065
     Dates: start: 20070430, end: 20070430
  3. ROCURONIUM BROMIDE [Suspect]
     Route: 065
     Dates: start: 20070430, end: 20070430
  4. MIDAZOLAM [Suspect]
     Route: 065
     Dates: start: 20070430, end: 20070430
  5. PROPOFOL [Suspect]
     Route: 065
     Dates: start: 20070430, end: 20070430

REACTIONS (3)
  - ANAPHYLACTIC SHOCK [None]
  - BLOOD PRESSURE DECREASED [None]
  - BRADYCARDIA [None]
